FAERS Safety Report 9076841 (Version 1)
Quarter: 2013Q1

REPORT INFORMATION
  Report Type: Report from Study
  Country: CA (occurrence: CA)
  Receive Date: 20130130
  Receipt Date: 20130130
  Transmission Date: 20140127
  Serious: Yes (Other)
  Sender: FDA-Public Use
  Company Number: CA-JNJFOC-20130111300

PATIENT
  Age: 22 None
  Sex: Female
  Weight: 55 kg

DRUGS (7)
  1. REMICADE [Suspect]
     Indication: ARTHRITIS
     Route: 042
     Dates: start: 2007
  2. REMICADE [Suspect]
     Indication: CROHN^S DISEASE
     Route: 042
     Dates: start: 2007
  3. SULFASALAZINE [Concomitant]
     Route: 065
  4. FOLIC ACID [Concomitant]
     Route: 065
  5. GABAPENTIN [Concomitant]
     Route: 065
  6. ELAVIL [Concomitant]
     Route: 065
  7. METHOTREXATE [Concomitant]
     Dosage: 1 OF ML
     Route: 058

REACTIONS (1)
  - Iritis [Not Recovered/Not Resolved]
